FAERS Safety Report 10245405 (Version 1)
Quarter: 2014Q2

REPORT INFORMATION
  Report Type: Spontaneous
  Country: CH (occurrence: CH)
  Receive Date: 20140618
  Receipt Date: 20140618
  Transmission Date: 20141212
  Serious: Yes (Hospitalization)
  Sender: FDA-Public Use
  Company Number: PHHY2014CH073259

PATIENT
  Age: 70 Year
  Sex: Male
  Weight: 75.5 kg

DRUGS (12)
  1. RASILEZ [Suspect]
     Indication: HYPERTENSION
     Dosage: 1 DF (300 MG), PER DAY
     Route: 048
     Dates: start: 2013, end: 20140408
  2. EXFORGE HCT [Interacting]
     Indication: HYPERTENSION
     Dosage: 1 DF (160 MG VALS+10 MG AMLO+25 MG HCT), PER DAY
     Route: 048
     Dates: start: 2013
  3. BELOC-ZOK [Suspect]
     Indication: HYPERTENSION
     Dosage: 1 DF (200 MG), PER DAY
     Route: 048
  4. BELOC-ZOK [Suspect]
     Indication: CORONARY ARTERY DISEASE
     Dosage: 100 MG, PER DAY
     Route: 048
  5. PROGRAF [Suspect]
     Indication: LIVER TRANSPLANT
     Dosage: 2 DF (1 MG), PER DAY
     Route: 048
  6. ASPIRIN CARDIO [Concomitant]
     Dosage: 1 DF (100 MG), PER DAY
     Route: 048
  7. CRESTOR [Concomitant]
     Dosage: 1 DF (10 MG), PER DAY
     Route: 048
  8. RANEXA [Concomitant]
     Dosage: 2 DF (375 MG), PER DAY
     Route: 048
  9. URSOCHOL [Concomitant]
     Dosage: 4 DF (300 MG), PER DAY
     Route: 048
  10. ESOMEP//ESOMEPRAZOLE [Concomitant]
     Dosage: 1 DF (40 MG), PER DAY
     Route: 048
  11. LANTUS [Concomitant]
     Dosage: 32 IU, UNK
     Route: 058
  12. INSULIN NOVO RAPITARD [Concomitant]
     Dosage: UNK UKN, UNK
     Route: 058

REACTIONS (4)
  - Hypomagnesaemia [Unknown]
  - Renal failure chronic [Recovered/Resolved]
  - Hyperkalaemia [Recovered/Resolved]
  - Bradycardia [Recovered/Resolved]
